FAERS Safety Report 21251973 (Version 2)
Quarter: 2022Q3

REPORT INFORMATION
  Report Type: Report from Study
  Country: CA (occurrence: CA)
  Receive Date: 20220825
  Receipt Date: 20220829
  Transmission Date: 20221027
  Serious: Yes (Other)
  Sender: FDA-Public Use
  Company Number: CA-JNJFOC-20220844231

PATIENT
  Age: 7 Decade
  Sex: Male

DRUGS (2)
  1. REMICADE [Suspect]
     Active Substance: INFLIXIMAB
     Indication: Crohn^s disease
     Dosage: THE PATIENT HAD CANCELLED HIS APPOINTMENT ON 13-SEP-2022.
     Route: 042
     Dates: start: 20171011
  2. REMICADE [Suspect]
     Active Substance: INFLIXIMAB
     Dosage: THE PATIENT HAD CANCELLED HIS APPOINTMENT ON 13-SEP-2022.
     Route: 042
     Dates: end: 20220719

REACTIONS (5)
  - Neoplasm malignant [Unknown]
  - Frequent bowel movements [Unknown]
  - Pain [Unknown]
  - Malaise [Unknown]
  - Pulmonary mass [Unknown]
